FAERS Safety Report 12720611 (Version 1)
Quarter: 2016Q3

REPORT INFORMATION
  Report Type: Spontaneous
  Country: FR (occurrence: FR)
  Receive Date: 20160907
  Receipt Date: 20160907
  Transmission Date: 20161109
  Serious: Yes (Other)
  Sender: FDA-Public Use
  Company Number: FR-ASTELLAS-2016US033817

PATIENT
  Age: 52 Year
  Sex: Female

DRUGS (7)
  1. TACROLIMUS. [Suspect]
     Active Substance: TACROLIMUS
     Indication: IMMUNOSUPPRESSION
     Dosage: 50 TO 10 NG/ML UNKNOWN FREQ.
     Route: 065
  2. VIRAFERON [Suspect]
     Active Substance: INTERFERON ALFA-2B
     Indication: HEPATITIS C
     Route: 065
  3. VIRAFERON [Suspect]
     Active Substance: INTERFERON ALFA-2B
     Dosage: UNK, UNKNOWN FREQ.
     Route: 065
  4. COPEGUS [Suspect]
     Active Substance: RIBAVIRIN
     Dosage: UNK, UNKNOWN FREQ.
     Route: 065
  5. COPEGUS [Suspect]
     Active Substance: RIBAVIRIN
     Indication: HEPATITIS C
     Route: 065
  6. TACROLIMUS. [Suspect]
     Active Substance: TACROLIMUS
     Dosage: UNK, UNKNOWN FREQ. (REDUCED BY 95%)
     Route: 065
  7. TELAPREVIR [Suspect]
     Active Substance: TELAPREVIR
     Indication: HEPATITIS C
     Route: 048

REACTIONS (4)
  - Anaemia [Unknown]
  - Neutropenia [Unknown]
  - Drug interaction [Unknown]
  - Thrombocytopenia [Unknown]
